FAERS Safety Report 6010092-4 (Version None)
Quarter: 2008Q4

REPORT INFORMATION
  Report Type: 
  Country: None (occurrence: None)
  Receive Date: 20081218
  Receipt Date: 20080626
  Transmission Date: 20090506
  Serious: Yes (Other)
  Sender: FDA-Public Use
  Company Number: US-BAXTER-2008BH010319

PATIENT

DRUGS (13)
  1. POLYGAM S/D [Suspect]
     Indication: PRIMARY IMMUNODEFICIENCY SYNDROME
     Dosage: DOSE UNIT:UNKNOWN
     Route: 042
  2. POLYGAM S/D [Suspect]
     Indication: IMMUNODEFICIENCY
     Dosage: DOSE UNIT:UNKNOWN
     Route: 042
  3. GAMIMUNE [Suspect]
     Indication: PRIMARY IMMUNODEFICIENCY SYNDROME
     Dosage: DOSE UNIT:UNKNOWN
     Route: 042
  4. GAMIMUNE [Suspect]
     Indication: HUMORAL IMMUNE DEFECT
     Dosage: DOSE UNIT:UNKNOWN
     Route: 042
  5. GAMUNEX [Suspect]
     Indication: PRIMARY IMMUNODEFICIENCY SYNDROME
     Dosage: DOSE UNIT:UNKNOWN
     Route: 042
  6. GAMUNEX [Suspect]
     Indication: HUMORAL IMMUNE DEFECT
     Dosage: DOSE UNIT:UNKNOWN
     Route: 042
  7. PANGLOBULIN [Suspect]
     Indication: PRIMARY IMMUNODEFICIENCY SYNDROME
     Dosage: DOSE UNIT:UNKNOWN
     Route: 042
  8. PANGLOBULIN [Suspect]
     Indication: HUMORAL IMMUNE DEFECT
     Dosage: DOSE UNIT:UNKNOWN
     Route: 042
  9. VIVAGLOBIN [Suspect]
     Indication: PRIMARY IMMUNODEFICIENCY SYNDROME
     Dosage: DOSE UNIT:UNKNOWN
     Route: 042
  10. VIVAGLOBIN [Suspect]
     Indication: HUMORAL IMMUNE DEFECT
     Dosage: DOSE UNIT:UNKNOWN
     Route: 042
  11. VIVAGLOBIN [Suspect]
     Indication: DEVELOPMENTAL DELAY
     Dosage: DOSE UNIT:UNKNOWN
     Route: 042
  12. ACETAMINOPHEN [Concomitant]
     Indication: PREMEDICATION
     Route: 065
  13. DIPHENHYDRAMINE HCL [Concomitant]
     Indication: PREMEDICATION
     Route: 065

REACTIONS (3)
  - ANAPHYLACTOID REACTION [None]
  - DRUG INTOLERANCE [None]
  - HYPERTENSION [None]
